FAERS Safety Report 8287737-1 (Version None)
Quarter: 2012Q2

REPORT INFORMATION
  Report Type: 
  Country: None (occurrence: None)
  Receive Date: 20120416
  Receipt Date: 20120410
  Transmission Date: 20120825
  Serious: Yes (Hospitalization)
  Sender: FDA-Public Use
  Company Number: FI-AMGEN-FINSP2010007511

PATIENT
  Age: 56 Year
  Sex: Female

DRUGS (20)
  1. ATACAND [Concomitant]
  2. CYMBALTA [Concomitant]
  3. FELODIPINE [Concomitant]
  4. FUROSEMIDE [Concomitant]
  5. SPESICOR [Concomitant]
  6. PANTOPRAZOLE [Concomitant]
  7. ETALPHA [Concomitant]
     Dosage: 1 MUG, UNK
  8. ESTROGEN [Concomitant]
     Dosage: UNK
  9. CALCICHEW-D3 FORTE [Concomitant]
  10. SODIUM POLYSTYRENE SULFONATE [Concomitant]
  11. LEVOTHYROXINE SODIUM [Concomitant]
  12. EMGESAN [Concomitant]
  13. PROLIA [Suspect]
     Indication: OSTEOPOROSIS
     Dosage: 60 MG, Q6MO
     Route: 058
     Dates: start: 20101105, end: 20101105
  14. ARANESP [Concomitant]
     Indication: RENAL FAILURE CHRONIC
     Dosage: 60 MUG, UNK
  15. NOVORAPID [Concomitant]
  16. PRAMIPEXOLE DIHYDROCHLORIDE [Concomitant]
  17. SOLOMET                            /00049601/ [Concomitant]
     Dosage: 4 MG, UNK
     Dates: start: 20090101
  18. PROTAPHAN [Concomitant]
     Dosage: 11 IU, UNK
  19. LIPITOR [Concomitant]
  20. CALCIUM CARBONATE [Concomitant]
     Dosage: 2000 MG, QD
     Route: 048
     Dates: start: 20101101

REACTIONS (5)
  - HAEMOBILIA [None]
  - ASTHENIA [None]
  - HAEMATEMESIS [None]
  - HYPOCALCAEMIA [None]
  - THROMBOSIS PROPHYLAXIS [None]
